FAERS Safety Report 11785778 (Version 1)
Quarter: 2015Q4

REPORT INFORMATION
  Report Type: Spontaneous
  Country: CH (occurrence: CH)
  Receive Date: 20151130
  Receipt Date: 20151130
  Transmission Date: 20160305
  Serious: Yes (Hospitalization)
  Sender: FDA-Public Use
  Company Number: CH-GLAXOSMITHKLINE-CH2015167528

PATIENT
  Age: 58 Year
  Sex: Female

DRUGS (11)
  1. DIOVAN 80 MG FILMTABLETTEN [Concomitant]
     Route: 048
  2. ZOLPIDEM [Concomitant]
     Active Substance: ZOLPIDEM\ZOLPIDEM TARTRATE
     Route: 048
  3. FLUOXETINE [Interacting]
     Active Substance: FLUOXETINE HYDROCHLORIDE
     Route: 048
  4. VI-DE 3 [Concomitant]
     Active Substance: CHOLECALCIFEROL
     Route: 048
  5. FLAGYL [Interacting]
     Active Substance: METRONIDAZOLE\METRONIDAZOLE HYDROCHLORIDE
     Dosage: 500 MG, TID
     Route: 040
     Dates: start: 20150909, end: 20150910
  6. NEXIUM [Suspect]
     Active Substance: ESOMEPRAZOLE MAGNESIUM
     Route: 048
     Dates: end: 20150911
  7. SIMVASTATIN. [Concomitant]
     Active Substance: SIMVASTATIN
     Route: 048
  8. ZINACEF [Suspect]
     Active Substance: CEFUROXIME SODIUM
     Dosage: 1500 MG, TID
     Route: 040
     Dates: start: 20150909, end: 20150910
  9. TEMGESIC SUBLINGUAL 0,2 MG TABLETTEN [Concomitant]
     Route: 060
     Dates: start: 20150911, end: 20151001
  10. LYRICA [Concomitant]
     Active Substance: PREGABALIN
     Route: 048
  11. HEPARINE SODIUM [Suspect]
     Active Substance: HEPARIN SODIUM
     Dosage: 15000 IU, QD
     Route: 041
     Dates: start: 20150907, end: 20150911

REACTIONS (3)
  - Prescribed overdose [Recovered/Resolved]
  - Drug interaction [Recovered/Resolved]
  - Thrombocytopenia [Recovered/Resolved]

NARRATIVE: CASE EVENT DATE: 20150909
